FAERS Safety Report 10518613 (Version 2)
Quarter: 2014Q4

REPORT INFORMATION
  Report Type: Spontaneous
  Country: US (occurrence: US)
  Receive Date: 20141015
  Receipt Date: 20141015
  Transmission Date: 20150528
  Serious: Yes (Other)
  Sender: FDA-Public Use
  Company Number: US-LEO PHARMA-225425

PATIENT
  Sex: Male

DRUGS (2)
  1. HUMIRA [Concomitant]
     Active Substance: ADALIMUMAB
     Indication: CROHN^S DISEASE
  2. PICATO [Suspect]
     Active Substance: INGENOL MEBUTATE
     Indication: ACTINIC KERATOSIS
     Route: 061

REACTIONS (2)
  - Eye burns [Recovered/Resolved]
  - Vision blurred [Recovered/Resolved]
